FAERS Safety Report 8971715 (Version 1)
Quarter: 2012Q4

REPORT INFORMATION
  Report Type: 
  Country: US (occurrence: US)
  Receive Date: 20121217
  Receipt Date: 20121217
  Transmission Date: 20130627
  Serious: Yes (Other)
  Sender: FDA-Public Use
  Company Number: US-VIIV HEALTHCARE LIMITED-A0962946A

PATIENT
  Sex: Male

DRUGS (3)
  1. LEXIVA [Suspect]
     Indication: HIV INFECTION
     Route: 048
  2. HIV TREATMENTS (UNSPECIFIED) [Concomitant]
  3. ISENTRESS [Concomitant]

REACTIONS (1)
  - Stevens-Johnson syndrome [Unknown]
